FAERS Safety Report 9213180 (Version 3)
Quarter: 2013Q2

REPORT INFORMATION
  Report Type: Report from Study
  Country: JP (occurrence: JP)
  Receive Date: 20130405
  Receipt Date: 20130531
  Transmission Date: 20140414
  Serious: Yes (Death)
  Sender: FDA-Public Use
  Company Number: JP-JNJFOC-20130400003

PATIENT
  Sex: Male

DRUGS (1)
  1. ONEDURO [Suspect]
     Indication: CANCER PAIN
     Dosage: HALF PATCH
     Route: 062
     Dates: start: 20121112, end: 20121210

REACTIONS (2)
  - Lung neoplasm malignant [Fatal]
  - Wrong technique in drug usage process [Unknown]
